FAERS Safety Report 10714963 (Version 1)
Quarter: 2015Q1

REPORT INFORMATION
  Report Type: Spontaneous
  Country: US (occurrence: US)
  Receive Date: 20150115
  Receipt Date: 20150115
  Transmission Date: 20150721
  Serious: No
  Sender: FDA-Public Use
  Company Number: US-GLAXOSMITHKLINE-US2014GSK047186

PATIENT
  Sex: Female

DRUGS (1)
  1. ROPINIROLE HYDROCHLORIDE PROLONGED-RELEASE TABLET [Suspect]
     Active Substance: ROPINIROLE HYDROCHLORIDE
     Indication: PRODUCT USED FOR UNKNOWN INDICATION

REACTIONS (1)
  - Adverse reaction [Unknown]
